FAERS Safety Report 5010533-5 (Version None)
Quarter: 2006Q2

REPORT INFORMATION
  Report Type: 
  Country: None (occurrence: None)
  Receive Date: 20060523
  Receipt Date: 20060510
  Transmission Date: 20061013
  Serious: Yes (Death, Hospitalization, Other)
  Sender: FDA-Public Use
  Company Number: 2005041237

PATIENT
  Age: 58 Year
  Sex: Male
  Weight: 95.2554 kg

DRUGS (1)
  1. CELEBREX [Suspect]
     Indication: OSTEOARTHRITIS
     Dosage: 400 MG (200 MG, 2 IN 1 D)
     Dates: start: 20000309, end: 20000804

REACTIONS (7)
  - ANGIOPATHY [None]
  - CARDIAC FAILURE CONGESTIVE [None]
  - CORONARY ARTERY DISEASE [None]
  - GENERAL PHYSICAL HEALTH DETERIORATION [None]
  - HAEMORRHAGIC STROKE [None]
  - MYOCARDIAL INFARCTION [None]
  - THROMBOSIS [None]
